FAERS Safety Report 10520626 (Version 1)
Quarter: 2014Q4

REPORT INFORMATION
  Report Type: Spontaneous
  Country: US (occurrence: US)
  Receive Date: 20141015
  Receipt Date: 20141015
  Transmission Date: 20150528
  Serious: No
  Sender: FDA-Public Use
  Company Number: US-SA-2014SA011551

PATIENT
  Sex: Male

DRUGS (1)
  1. AVALIDE [Suspect]
     Active Substance: HYDROCHLOROTHIAZIDE\IRBESARTAN
     Dosage: DOSE: 12.5/150MG
     Route: 065

REACTIONS (2)
  - Blood pressure decreased [Unknown]
  - Wrong technique in drug usage process [Unknown]
